FAERS Safety Report 14269778 (Version 5)
Quarter: 2022Q2

REPORT INFORMATION
  Report Type: Spontaneous
  Country: JP (occurrence: JP)
  Receive Date: 20171211
  Receipt Date: 20220412
  Transmission Date: 20220720
  Serious: Yes (Hospitalization, Other)
  Sender: FDA-Public Use
  Company Number: JP-OTSUKA-2016_021871

PATIENT
  Age: 52 Year
  Sex: Female

DRUGS (10)
  1. ABILIFY [Suspect]
     Active Substance: ARIPIPRAZOLE
     Indication: Apathy
     Dosage: UNK
     Route: 048
  2. ABILIFY [Suspect]
     Active Substance: ARIPIPRAZOLE
     Indication: Bipolar disorder
     Dosage: UNK
     Route: 048
  3. ABILIFY [Suspect]
     Active Substance: ARIPIPRAZOLE
     Dosage: UNK
     Route: 048
  4. ABILIFY [Suspect]
     Active Substance: ARIPIPRAZOLE
     Dosage: UNK
     Route: 048
  5. ABILIFY [Suspect]
     Active Substance: ARIPIPRAZOLE
     Dosage: UNK
     Route: 048
  6. ABILIFY [Suspect]
     Active Substance: ARIPIPRAZOLE
     Indication: Sleep disorder
     Dosage: UNK
     Route: 048
  7. ABILIFY [Suspect]
     Active Substance: ARIPIPRAZOLE
     Indication: Bipolar disorder
     Dosage: 24 MG, UNK
     Route: 048
  8. CHLORPROMAZINE HIBENZATE [Concomitant]
     Active Substance: CHLORPROMAZINE HIBENZATE
     Indication: Sleep disorder
     Dosage: UNK
     Route: 048
  9. ZOTEPINE [Concomitant]
     Active Substance: ZOTEPINE
     Indication: Product used for unknown indication
     Dosage: UNK
     Route: 048
  10. SEROQUEL [Concomitant]
     Active Substance: QUETIAPINE FUMARATE
     Indication: Product used for unknown indication
     Dosage: UNK
     Route: 048

REACTIONS (12)
  - Mania [Not Recovered/Not Resolved]
  - Tardive dyskinesia [Recovered/Resolved]
  - Protrusion tongue [Unknown]
  - Tongue disorder [Unknown]
  - Feeling abnormal [Unknown]
  - Insomnia [Unknown]
  - Dyskinesia [Unknown]
  - Akathisia [Unknown]
  - Treatment noncompliance [Unknown]
  - Product use in unapproved indication [Unknown]
  - Wrong product administered [Unknown]
  - Intentional product use issue [Unknown]
